FAERS Safety Report 9341164 (Version 1)
Quarter: 2013Q2

REPORT INFORMATION
  Report Type: Report from Study
  Country: AU (occurrence: AU)
  Receive Date: 20130611
  Receipt Date: 20130611
  Transmission Date: 20140414
  Serious: Yes (Other)
  Sender: FDA-Public Use
  Company Number: AU-ROCHE-1234976

PATIENT
  Age: 76 Year
  Sex: Male

DRUGS (3)
  1. LUCENTIS [Suspect]
     Indication: AGE-RELATED MACULAR DEGENERATION
     Dosage: LAST DOSE PRIOR TO EVENT ON 30/MAY/2008
     Route: 050
  2. LUCENTIS [Suspect]
     Route: 050
     Dates: start: 201101
  3. LUCENTIS [Suspect]
     Route: 050
     Dates: end: 201103

REACTIONS (2)
  - Blindness [Unknown]
  - Therapeutic response decreased [Unknown]
